FAERS Safety Report 20647509 (Version 1)
Quarter: 2022Q1

REPORT INFORMATION
  Report Type: Spontaneous
  Country: US (occurrence: None)
  Receive Date: 20220328
  Receipt Date: 20220328
  Transmission Date: 20220423
  Serious: Yes (Other)
  Sender: FDA-Public Use
  Company Number: None

PATIENT
  Age: 39 Year
  Sex: Female
  Weight: 89.1 kg

DRUGS (1)
  1. SUBOXONE [Suspect]
     Active Substance: BUPRENORPHINE HYDROCHLORIDE\NALOXONE HYDROCHLORIDE
     Indication: Drug dependence
     Dosage: OTHER QUANTITY : 56 SUBLINGUAL;?FREQUENCY : EVERY 12 HOURS;?
     Route: 060
     Dates: start: 20080202

REACTIONS (2)
  - Dental caries [None]
  - Tooth fracture [None]

NARRATIVE: CASE EVENT DATE: 20080202
